FAERS Safety Report 22000366 (Version 2)
Quarter: 2023Q2

REPORT INFORMATION
  Report Type: Spontaneous
  Country: US (occurrence: US)
  Receive Date: 20230216
  Receipt Date: 20230405
  Transmission Date: 20230722
  Serious: No
  Sender: FDA-Public Use
  Company Number: US-PFIZER INC-PV202300028920

PATIENT
  Age: 63 Year
  Sex: Female

DRUGS (1)
  1. IBRANCE [Suspect]
     Active Substance: PALBOCICLIB

REACTIONS (5)
  - Alopecia [Unknown]
  - Functional gastrointestinal disorder [Unknown]
  - Fatigue [Unknown]
  - COVID-19 [Recovered/Resolved]
  - Tumour marker increased [Unknown]

NARRATIVE: CASE EVENT DATE: 20230101
